FAERS Safety Report 8089648-3 (Version None)
Quarter: 2012Q1

REPORT INFORMATION
  Report Type: 
  Country: None (occurrence: None)
  Receive Date: 20120128
  Receipt Date: 20110817
  Transmission Date: 20120608
  Serious: No
  Sender: FDA-Public Use
  Company Number: US-ABBOTT-11P-163-0728529-00

PATIENT
  Age: 23 Year
  Sex: Male

DRUGS (2)
  1. HYDROCODONE BITARTRATE [Concomitant]
     Dosage: 2-4
  2. HUMIRA [Suspect]
     Indication: OSTEOMYELITIS
     Dosage: QOW
     Dates: start: 20070101, end: 20110101

REACTIONS (8)
  - RASH [None]
  - RASH PUSTULAR [None]
  - CONTUSION [None]
  - HAEMORRHAGIC DISORDER [None]
  - PURPURA [None]
  - SCAB [None]
  - DRY SKIN [None]
  - ERYTHEMA [None]
